FAERS Safety Report 23880228 (Version 2)
Quarter: 2024Q2

REPORT INFORMATION
  Report Type: Report from Study
  Country: US (occurrence: US)
  Receive Date: 20240521
  Receipt Date: 20240605
  Transmission Date: 20240716
  Serious: Yes (Death, Hospitalization, Other)
  Sender: FDA-Public Use
  Company Number: US-BAYER-2024A065949

PATIENT
  Age: 73 Year
  Sex: Female
  Weight: 61.224 kg

DRUGS (20)
  1. ADEMPAS [Suspect]
     Active Substance: RIOCIGUAT
     Indication: Pulmonary arterial hypertension
     Dosage: UNK
     Dates: start: 20200715
  2. ADEMPAS [Suspect]
     Active Substance: RIOCIGUAT
     Indication: Pulmonary arterial hypertension
     Dosage: 2 MG, TID
     Route: 048
  3. TYVASO [Concomitant]
     Active Substance: TREPROSTINIL
  4. INSULIN LISPRO [Concomitant]
     Active Substance: INSULIN LISPRO
  5. MIRTAZAPINE [Concomitant]
     Active Substance: MIRTAZAPINE
  6. NORCO [Concomitant]
     Active Substance: ACETAMINOPHEN\HYDROCODONE BITARTRATE
  7. ROSUVASTATIN CALCIUM [Concomitant]
     Active Substance: ROSUVASTATIN CALCIUM
  8. ASPIRIN [Concomitant]
     Active Substance: ASPIRIN
  9. POTASSIUM [Concomitant]
     Active Substance: POTASSIUM
  10. GLIPIZIDE [Concomitant]
     Active Substance: GLIPIZIDE
  11. MAGNESIUM [Concomitant]
     Active Substance: MAGNESIUM
  12. CLONAZEPAM [Concomitant]
     Active Substance: CLONAZEPAM
  13. METFORMIN HYDROCHLORIDE [Concomitant]
     Active Substance: METFORMIN HYDROCHLORIDE
  14. HYDROCHLOROTHIAZIDE [Concomitant]
     Active Substance: HYDROCHLOROTHIAZIDE
  15. MORPHINE SULFATE [Concomitant]
     Active Substance: MORPHINE SULFATE
  16. BENADRYL [Concomitant]
     Active Substance: DIPHENHYDRAMINE HYDROCHLORIDE
  17. IRON [Concomitant]
     Active Substance: IRON
  18. GABAPENTIN [Concomitant]
     Active Substance: GABAPENTIN
  19. OXYGEN [Concomitant]
     Active Substance: OXYGEN
  20. JANUVIA [Concomitant]
     Active Substance: SITAGLIPTIN PHOSPHATE

REACTIONS (5)
  - Death [Fatal]
  - Pneumonia [None]
  - COVID-19 [None]
  - Cough [None]
  - Oropharyngeal pain [None]

NARRATIVE: CASE EVENT DATE: 20240101
